FAERS Safety Report 17998956 (Version 1)
Quarter: 2020Q3

REPORT INFORMATION
  Report Type: Spontaneous
  Country: US (occurrence: US)
  Receive Date: 20200708
  Receipt Date: 20200708
  Transmission Date: 20201103
  Serious: Yes (Disabling)
  Sender: FDA-Public Use
  Company Number: None

PATIENT
  Age: 45 Year
  Sex: Female
  Weight: 99 kg

DRUGS (11)
  1. COLLAGEN [Concomitant]
     Active Substance: COLLAGEN
  2. SYNTHROID [Concomitant]
     Active Substance: LEVOTHYROXINE SODIUM
  3. VIIBRYD [Concomitant]
     Active Substance: VILAZODONE HYDROCHLORIDE
  4. BIOTIN [Concomitant]
     Active Substance: BIOTIN
  5. LEVAQUIN [Suspect]
     Active Substance: LEVOFLOXACIN
     Indication: PYREXIA
     Dosage: ?          QUANTITY:10 TABLET(S);?
     Route: 048
     Dates: start: 20200623, end: 20200702
  6. HORIZANT [Concomitant]
     Active Substance: GABAPENTIN ENACARBIL
  7. POTASSIUM [Concomitant]
     Active Substance: POTASSIUM
  8. CALCIUM [Concomitant]
     Active Substance: CALCIUM
  9. IRON [Concomitant]
     Active Substance: IRON
  10. MULTIVITAMIN [Concomitant]
     Active Substance: VITAMINS
  11. LISINOPRIL. [Concomitant]
     Active Substance: LISINOPRIL

REACTIONS (3)
  - Peripheral swelling [None]
  - Arthralgia [None]
  - Contusion [None]

NARRATIVE: CASE EVENT DATE: 20200702
